FAERS Safety Report 4659393-2 (Version None)
Quarter: 2005Q2

REPORT INFORMATION
  Report Type: 
  Country: None (occurrence: None)
  Receive Date: 20050510
  Receipt Date: 20050429
  Transmission Date: 20051028
  Serious: Yes (Hospitalization)
  Sender: FDA-Public Use
  Company Number: GBWYE524222MAR05

PATIENT
  Age: 91 Year
  Sex: Male

DRUGS (8)
  1. EFFEXOR XR [Suspect]
     Indication: DEPRESSION
     Dosage: 75 MG 2X PER 1 DAY
     Route: 048
     Dates: start: 20020101
  2. DIGOXIN [Concomitant]
  3. ASPIRIN [Concomitant]
  4. FLUPENTIXOL (FLUPENTIXOL) [Concomitant]
  5. DEXETIMIDE (DEXETIMIDE) [Concomitant]
  6. LEVOTHYROXINE SODIUM [Concomitant]
  7. CALCIUM (CALCIUM) [Concomitant]
  8. VITAMIN D3 (COLECALCIFEROL) [Concomitant]

REACTIONS (2)
  - BUNDLE BRANCH BLOCK LEFT [None]
  - FALL [None]
